FAERS Safety Report 20974459 (Version 3)
Quarter: 2022Q3

REPORT INFORMATION
  Report Type: Spontaneous
  Country: BR (occurrence: BR)
  Receive Date: 20220617
  Receipt Date: 20220920
  Transmission Date: 20221027
  Serious: Yes (Other)
  Sender: FDA-Public Use
  Company Number: BR-CHEPLA-2022004876

PATIENT
  Age: 59 Year
  Sex: Male
  Weight: 93.5 kg

DRUGS (27)
  1. CLONAZEPAM [Suspect]
     Active Substance: CLONAZEPAM
     Indication: Feeling of relaxation
     Dosage: RIVOTRIL 2 MG (STARTED 8/9 MONTHS AGO)?DAILY DOSE: 1 DOSAGE FORM
     Route: 048
     Dates: start: 2021
  2. CLONAZEPAM [Suspect]
     Active Substance: CLONAZEPAM
     Indication: Insomnia
     Dosage: RIVOTRIL 2 MG (STARTED 8/9 MONTHS AGO)?DAILY DOSE: 1 DOSAGE FORM
     Route: 048
     Dates: start: 2021
  3. CLONAZEPAM [Suspect]
     Active Substance: CLONAZEPAM
     Indication: Depression
     Dosage: RIVOTRIL 2 MG (STARTED 8/9 MONTHS AGO)?DAILY DOSE: 1 DOSAGE FORM
     Route: 048
     Dates: start: 2021
  4. CLONAZEPAM [Suspect]
     Active Substance: CLONAZEPAM
     Indication: Feeling of relaxation
     Dosage: RIVOTRIL 2 MG (HE USED TO BREAK THE 2 MG TABLET IN HALF)?DAILY DOSE: 1 MILLIGRAM
     Route: 048
  5. CLONAZEPAM [Suspect]
     Active Substance: CLONAZEPAM
     Indication: Insomnia
     Dosage: RIVOTRIL 2 MG (HE USED TO BREAK THE 2 MG TABLET IN HALF)?DAILY DOSE: 1 MILLIGRAM
     Route: 048
  6. CLONAZEPAM [Suspect]
     Active Substance: CLONAZEPAM
     Indication: Depression
     Dosage: RIVOTRIL 2 MG (HE USED TO BREAK THE 2 MG TABLET IN HALF)?DAILY DOSE: 1 MILLIGRAM
     Route: 048
  7. CLONAZEPAM [Suspect]
     Active Substance: CLONAZEPAM
     Indication: Feeling of relaxation
     Dosage: RIVOTRIL 0.5 MG?20 YEARS AGO TO 15 YEARS AGO?DAILY DOSE: 1 DOSAGE FORM
     Route: 048
  8. CLONAZEPAM [Suspect]
     Active Substance: CLONAZEPAM
     Indication: Insomnia
     Dosage: RIVOTRIL 0.5 MG?20 YEARS AGO TO 15 YEARS AGO?DAILY DOSE: 1 DOSAGE FORM
     Route: 048
  9. CLONAZEPAM [Suspect]
     Active Substance: CLONAZEPAM
     Indication: Depression
     Dosage: RIVOTRIL 0.5 MG?20 YEARS AGO TO 15 YEARS AGO?DAILY DOSE: 1 DOSAGE FORM
     Route: 048
  10. CLONAZEPAM [Suspect]
     Active Substance: CLONAZEPAM
     Indication: Feeling of relaxation
     Dosage: RIVOTRIL 2 MG (USING ONLY 1/4 OF THE TABLET)?DAILY DOSE: 0.25 DOSAGE FORM
     Route: 048
  11. CLONAZEPAM [Suspect]
     Active Substance: CLONAZEPAM
     Indication: Insomnia
     Dosage: RIVOTRIL 2 MG (USING ONLY 1/4 OF THE TABLET)?DAILY DOSE: 0.25 DOSAGE FORM
     Route: 048
  12. CLONAZEPAM [Suspect]
     Active Substance: CLONAZEPAM
     Indication: Depression
     Dosage: RIVOTRIL 2 MG (USING ONLY 1/4 OF THE TABLET)?DAILY DOSE: 0.25 DOSAGE FORM
     Route: 048
  13. BROMAZEPAM [Suspect]
     Active Substance: BROMAZEPAM
     Indication: Insomnia
     Dates: start: 20220728
  14. BROMAZEPAM [Suspect]
     Active Substance: BROMAZEPAM
     Indication: Anxiety
     Dates: start: 20220728
  15. BROMAZEPAM [Suspect]
     Active Substance: BROMAZEPAM
     Indication: Insomnia
     Dosage: PATIENT REDUCED THE LEXOTAN DOSAGE TO HALF A TABLET
     Dates: start: 202208
  16. BROMAZEPAM [Suspect]
     Active Substance: BROMAZEPAM
     Indication: Anxiety
     Dosage: PATIENT REDUCED THE LEXOTAN DOSAGE TO HALF A TABLET
     Dates: start: 202208
  17. CITALOPRAM [Suspect]
     Active Substance: CITALOPRAM HYDROBROMIDE
     Indication: Anxiety
     Dosage: STARTED 14 DAYS AGO?DAILY DOSE: 1 DOSAGE FORM
     Route: 048
     Dates: start: 202205
  18. CITALOPRAM [Suspect]
     Active Substance: CITALOPRAM HYDROBROMIDE
     Indication: Depression
     Dosage: STARTED 14 DAYS AGO?DAILY DOSE: 1 DOSAGE FORM
     Route: 048
     Dates: start: 202205
  19. ESCITALOPRAM [Suspect]
     Active Substance: ESCITALOPRAM OXALATE
     Indication: Depression
     Dosage: STARTED A LONG TIME AGO
     Route: 048
  20. ESCITALOPRAM [Suspect]
     Active Substance: ESCITALOPRAM OXALATE
     Indication: Anxiety
     Dosage: STARTED A LONG TIME AGO
     Route: 048
  21. DESVENLAFAXINE [Suspect]
     Active Substance: DESVENLAFAXINE
     Indication: Anxiety
     Route: 048
     Dates: start: 20220628
  22. PAROXETINE HYDROCHLORIDE [Suspect]
     Active Substance: PAROXETINE HYDROCHLORIDE
     Indication: Anxiety
     Route: 048
     Dates: start: 20220628
  23. Menelati Mirtazapina [Concomitant]
     Indication: Anxiety
     Dosage: AT NIGHT (STARTED 9 MONTHS AGO)?DAILY DOSE: 1 DOSAGE FORM
     Route: 048
     Dates: start: 2022
  24. Menelati Mirtazapina [Concomitant]
     Indication: Depression
     Dosage: AT NIGHT (STARTED 9 MONTHS AGO)?DAILY DOSE: 1 DOSAGE FORM
     Route: 048
     Dates: start: 2022
  25. ESTAZOLAM [Concomitant]
     Active Substance: ESTAZOLAM
     Indication: Anxiety
     Route: 048
  26. ESTAZOLAM [Concomitant]
     Active Substance: ESTAZOLAM
     Indication: Depression
     Route: 048
  27. DIPYRONE [Concomitant]
     Active Substance: DIPYRONE
     Indication: Osteoarthritis
     Dosage: SINCE 5 YEARS AGO
     Route: 048

REACTIONS (14)
  - Arrhythmia [Not Recovered/Not Resolved]
  - Drug dependence [Not Recovered/Not Resolved]
  - Rhonchi [Not Recovered/Not Resolved]
  - Osteoarthritis [Not Recovered/Not Resolved]
  - Burning sensation [Recovered/Resolved]
  - Chills [Recovered/Resolved]
  - Chest pain [Recovered/Resolved]
  - Anxiety [Recovered/Resolved]
  - Product use in unapproved indication [Not Recovered/Not Resolved]
  - Incorrect product administration duration [Not Recovered/Not Resolved]
  - Dizziness [Recovered/Resolved]
  - Syncope [Recovered/Resolved]
  - Therapeutic product effect incomplete [Not Recovered/Not Resolved]
  - Intentional product use issue [Unknown]

NARRATIVE: CASE EVENT DATE: 20150901
